FAERS Safety Report 19224830 (Version 1)
Quarter: 2021Q2

REPORT INFORMATION
  Report Type: Spontaneous
  Country: US (occurrence: US)
  Receive Date: 20210505
  Receipt Date: 20210505
  Transmission Date: 20210717
  Serious: No
  Sender: FDA-Public Use
  Company Number: US-ROCHE-2663880

PATIENT
  Sex: Male

DRUGS (3)
  1. ESBRIET [Suspect]
     Active Substance: PIRFENIDONE
     Indication: IDIOPATHIC PULMONARY FIBROSIS
     Dosage: ONE TABLET THREE TIMES A DAY; ONGOING; YES
     Route: 048
     Dates: start: 20200803
  2. ESBRIET [Suspect]
     Active Substance: PIRFENIDONE
     Dosage: TWO TABLET THREE TIMES A DAY IN 2ND WEEK
     Route: 048
  3. ESBRIET [Suspect]
     Active Substance: PIRFENIDONE
     Dosage: THREE TABLET THREE TIMES A DAY
     Route: 048

REACTIONS (2)
  - Constipation [Unknown]
  - Abdominal pain upper [Unknown]
